FAERS Safety Report 7680716-4 (Version None)
Quarter: 2011Q3

REPORT INFORMATION
  Report Type: 
  Country: None (occurrence: None)
  Receive Date: 20110812
  Receipt Date: 20110808
  Transmission Date: 20111222
  Serious: Yes (Other)
  Sender: FDA-Public Use
  Company Number: JP-PFIZER INC-2011182608

PATIENT
  Age: 57 Year
  Sex: Male
  Weight: 51.5 kg

DRUGS (5)
  1. ALPRAZOLAM [Suspect]
     Dosage: 2.4 MG, 1X/DAY
  2. AMOXAPINE [Suspect]
     Dosage: 75 MG, 1X/DAY
  3. AMOXAPINE [Suspect]
     Dosage: 150 MG/KG, 1X/DAY
  4. CLOMIPRAMINE [Suspect]
     Dosage: 75 MG, 1X/DAY
  5. LEVOMEPROMAZINE [Suspect]
     Dosage: 25 MG, 1X/DAY

REACTIONS (1)
  - NEUROLEPTIC MALIGNANT SYNDROME [None]
